FAERS Safety Report 24184362 (Version 1)
Quarter: 2024Q3

REPORT INFORMATION
  Report Type: Report from Study
  Country: CL (occurrence: CL)
  Receive Date: 20240807
  Receipt Date: 20240807
  Transmission Date: 20241017
  Serious: Yes (Other)
  Sender: JOHNSON AND JOHNSON
  Company Number: CL-JNJFOC-20240478210

PATIENT
  Age: 64 Year
  Sex: Female

DRUGS (2)
  1. SIMPONI [Suspect]
     Active Substance: GOLIMUMAB
     Indication: Rheumatoid arthritis
     Route: 058
     Dates: start: 20221017
  2. SIMPONI [Suspect]
     Active Substance: GOLIMUMAB
     Dosage: LAST DRUG APPLICATION: 29-JUL-2024
     Route: 058
     Dates: start: 20221017

REACTIONS (5)
  - Rheumatoid arthritis [Unknown]
  - Osteoarthritis [Unknown]
  - Nasopharyngitis [Unknown]
  - Pyrexia [Unknown]
  - Hypoacusis [Unknown]
